FAERS Safety Report 10621644 (Version 1)
Quarter: 2014Q4

REPORT INFORMATION
  Report Type: Spontaneous
  Country: US (occurrence: None)
  Receive Date: 20141201
  Receipt Date: 20141201
  Transmission Date: 20150529
  Serious: No
  Sender: FDA-Public Use
  Company Number: None

PATIENT
  Age: 61 Year
  Sex: Female
  Weight: 81.65 kg

DRUGS (1)
  1. TRAZODONE [Suspect]
     Active Substance: TRAZODONE HYDROCHLORIDE
     Indication: SLEEP DISORDER
     Dosage: 1/2 PILL TO 1 PILL TAKEN AT BEDTIME
     Route: 048
     Dates: start: 20130801, end: 20141101

REACTIONS (4)
  - Nightmare [None]
  - Poor quality sleep [None]
  - Hostility [None]
  - Personality change [None]

NARRATIVE: CASE EVENT DATE: 20130801
